FAERS Safety Report 18096419 (Version 5)
Quarter: 2020Q4

REPORT INFORMATION
  Report Type: Spontaneous
  Country: US (occurrence: US)
  Receive Date: 20200731
  Receipt Date: 20201223
  Transmission Date: 20210113
  Serious: Yes (Other)
  Sender: FDA-Public Use
  Company Number: US-SA-2020SA195961

PATIENT

DRUGS (1)
  1. DUPIXENT [Suspect]
     Active Substance: DUPILUMAB
     Indication: DERMATITIS ATOPIC
     Dosage: 300 MG, QOW
     Route: 058
     Dates: start: 20200609

REACTIONS (15)
  - Increased appetite [Unknown]
  - Myalgia [Recovering/Resolving]
  - Dyspnoea [Unknown]
  - Weight increased [Unknown]
  - Atrial fibrillation [Unknown]
  - Visual impairment [Unknown]
  - Hypoaesthesia oral [Unknown]
  - Lip swelling [Unknown]
  - Skin disorder [Unknown]
  - Anxiety [Unknown]
  - Pain in extremity [Recovering/Resolving]
  - Vitreous floaters [Unknown]
  - Swelling [Recovering/Resolving]
  - Chapped lips [Unknown]
  - Oral herpes [Unknown]

NARRATIVE: CASE EVENT DATE: 2020
